FAERS Safety Report 19761089 (Version 2)
Quarter: 2021Q3

REPORT INFORMATION
  Report Type: Report from Study
  Country: IT (occurrence: IT)
  Receive Date: 20210830
  Receipt Date: 20210903
  Transmission Date: 20211014
  Serious: Yes (Death, Hospitalization, Other)
  Sender: FDA-Public Use
  Company Number: IT-GLAXOSMITHKLINE-IT2021EME181634

PATIENT
  Age: 81 Year
  Sex: Male

DRUGS (1)
  1. BELANTAMAB MAFODOTIN. [Suspect]
     Active Substance: BELANTAMAB MAFODOTIN
     Indication: PLASMA CELL MYELOMA
     Dosage: 100MG/VIA /2.5 MG/KG EVERY 3 WEEKS
     Route: 042

REACTIONS (3)
  - Clavicle fracture [Unknown]
  - Plasma cell myeloma [Fatal]
  - Fall [Unknown]

NARRATIVE: CASE EVENT DATE: 20210527
